FAERS Safety Report 14403581 (Version 1)
Quarter: 2018Q1

REPORT INFORMATION
  Report Type: Spontaneous
  Country: US (occurrence: US)
  Receive Date: 20180116
  Receipt Date: 20180116
  Transmission Date: 20180509
  Serious: No
  Sender: FDA-Public Use
  Company Number: None

PATIENT
  Age: 44 Year
  Sex: Female

DRUGS (1)
  1. AMPYRA [Suspect]
     Active Substance: DALFAMPRIDINE
     Indication: MULTIPLE SCLEROSIS
     Route: 048
     Dates: start: 20100730

REACTIONS (6)
  - Urinary tract infection [None]
  - Staphylococcus test positive [None]
  - Klebsiella test positive [None]
  - Device related infection [None]
  - Pseudomonas test positive [None]
  - Culture urine positive [None]

NARRATIVE: CASE EVENT DATE: 20171223
